FAERS Safety Report 12539544 (Version 1)
Quarter: 2016Q3

REPORT INFORMATION
  Report Type: Spontaneous
  Country: US (occurrence: None)
  Receive Date: 20160707
  Receipt Date: 20160707
  Transmission Date: 20161109
  Serious: Yes (Disabling)
  Sender: FDA-Public Use
  Company Number: None

PATIENT
  Age: 54 Year
  Sex: Female
  Weight: 77.11 kg

DRUGS (3)
  1. REPLACEMENT HIPS [Concomitant]
  2. ST JOHNS WORT [Concomitant]
     Active Substance: ST. JOHN^S WORT
  3. PREMARIN VAGINAL [Suspect]
     Active Substance: ESTROGENS, CONJUGATED
     Indication: VULVOVAGINAL PAIN
     Dosage: 1 INJECTION AS NEEDED VAGINAL
     Route: 067
     Dates: start: 20160114, end: 20160705

REACTIONS (8)
  - Urticaria [None]
  - Vulvovaginal swelling [None]
  - Arthralgia [None]
  - Chills [None]
  - Headache [None]
  - Pain in extremity [None]
  - Pyrexia [None]
  - Irritability [None]

NARRATIVE: CASE EVENT DATE: 20160705
